FAERS Safety Report 4995758-7 (Version None)
Quarter: 2006Q2

REPORT INFORMATION
  Report Type: 
  Country: None (occurrence: None)
  Receive Date: 20060508
  Receipt Date: 20060404
  Transmission Date: 20061013
  Serious: Yes (Congenital Anomaly)
  Sender: FDA-Public Use
  Company Number: US-GILEAD-2006-0009413

PATIENT
  Sex: Male

DRUGS (4)
  1. VIREAD [Suspect]
     Indication: HIV INFECTION
     Route: 064
     Dates: start: 20051129
  2. COMBIVIR [Suspect]
     Indication: HIV INFECTION
     Route: 064
     Dates: start: 20050930, end: 20051130
  3. VIRACEPT [Suspect]
     Indication: HIV INFECTION
     Route: 064
     Dates: start: 20050930
  4. EPIVIR [Suspect]
     Indication: HIV INFECTION
     Route: 064
     Dates: start: 20051129

REACTIONS (2)
  - DRUG EXPOSURE DURING PREGNANCY [None]
  - SYNDACTYLY [None]
